FAERS Safety Report 9165494 (Version 1)
Quarter: 2013Q1

REPORT INFORMATION
  Report Type: Spontaneous
  Country: US (occurrence: None)
  Receive Date: 20130301
  Receipt Date: 20130301
  Transmission Date: 20140127
  Serious: Yes (Other)
  Sender: FDA-Public Use
  Company Number: 2013-0924

PATIENT
  Age: 43 Year
  Sex: Male

DRUGS (5)
  1. SOMATULINE DEPOT INJECTION (120MG) (SOMATULINE SR ) ( LANREOT I DE ) ( LANRE OT I DE ACETATE) [Suspect]
     Indication: ACROMEGALY
     Dosage: 120 MG (120 MG, 1 IN 28 D), SUBCUTANEOUS
     Route: 058
     Dates: start: 20130220
  2. SOMAVERT (PEGVISOMANT) [Concomitant]
  3. TESTOSTERONE (TESTOSTERONE) [Concomitant]
  4. PREDNISONE (PREDNISONE) [Concomitant]
  5. LEVOXYL (LEVOTHYROXINE SODIUM) [Concomitant]

REACTIONS (2)
  - Convulsion [None]
  - Dehydration [None]
